FAERS Safety Report 8327472-4 (Version None)
Quarter: 2012Q2

REPORT INFORMATION
  Report Type: 
  Country: None (occurrence: None)
  Receive Date: 20120502
  Receipt Date: 20120423
  Transmission Date: 20120825
  Serious: Yes (Hospitalization)
  Sender: FDA-Public Use
  Company Number: US-BAYER-2011-114256

PATIENT
  Age: 22 Year
  Sex: Female
  Weight: 81.633 kg

DRUGS (9)
  1. YASMIN [Suspect]
     Indication: PREMENSTRUAL SYNDROME
  2. DROSPIRENONE AND ETHINYL ESTRADIOL [Suspect]
     Indication: PREMENSTRUAL SYNDROME
  3. YAZ [Suspect]
     Indication: PREMENSTRUAL SYNDROME
  4. YASMIN [Suspect]
     Indication: ACNE
     Dosage: UNK
     Dates: start: 20040801, end: 20091001
  5. YASMIN [Suspect]
  6. YAZ [Suspect]
     Indication: ACNE
     Dosage: UNK
     Dates: start: 20040801, end: 20091001
  7. DROSPIRENONE AND ETHINYL ESTRADIOL [Suspect]
  8. YAZ [Suspect]
  9. DROSPIRENONE AND ETHINYL ESTRADIOL [Suspect]
     Indication: ACNE
     Dosage: UNK
     Dates: start: 20090801, end: 20091001

REACTIONS (2)
  - CHOLELITHIASIS [None]
  - PAIN [None]
